FAERS Safety Report 18964972 (Version 2)
Quarter: 2022Q4

REPORT INFORMATION
  Report Type: Spontaneous
  Country: US (occurrence: US)
  Receive Date: 20210303
  Receipt Date: 20221230
  Transmission Date: 20230113
  Serious: Yes (Death)
  Sender: FDA-Public Use
  Company Number: US-AMNEAL PHARMACEUTICALS-2020-AMRX-01627

PATIENT
  Age: 74 Year
  Sex: Male
  Weight: 108.86 kg

DRUGS (1)
  1. RYTARY [Suspect]
     Active Substance: CARBIDOPA\LEVODOPA
     Indication: Product used for unknown indication
     Dosage: 2 CAPSULES, 4 /DAY
     Route: 048

REACTIONS (2)
  - Adverse event [Fatal]
  - Weight increased [Unknown]

NARRATIVE: CASE EVENT DATE: 20221225
